FAERS Safety Report 24529996 (Version 1)
Quarter: 2024Q4

REPORT INFORMATION
  Report Type: Report from Study
  Country: US (occurrence: US)
  Receive Date: 20241021
  Receipt Date: 20241021
  Transmission Date: 20250115
  Serious: Yes (Hospitalization)
  Sender: UCB
  Company Number: US-UCBSA-2024052732

PATIENT
  Sex: Female

DRUGS (1)
  1. ROTIGOTINE [Suspect]
     Active Substance: ROTIGOTINE
     Indication: Parkinson^s disease
     Dosage: 1 MILLIGRAM, ONCE DAILY (QD)

REACTIONS (5)
  - Pneumonia [Not Recovered/Not Resolved]
  - Surgery [Not Recovered/Not Resolved]
  - Hysterectomy [Not Recovered/Not Resolved]
  - Intentional dose omission [Unknown]
  - Incorrect dose administered [Unknown]
